FAERS Safety Report 4592692-1 (Version None)
Quarter: 2005Q1

REPORT INFORMATION
  Report Type: 
  Country: None (occurrence: None)
  Receive Date: 20050222
  Receipt Date: 20050210
  Transmission Date: 20050727
  Serious: Yes (Death, Other)
  Sender: FDA-Public Use
  Company Number: 2005-02-0634

PATIENT
  Age: 71 Year
  Sex: Male

DRUGS (4)
  1. RINDERON [Suspect]
     Indication: NAUSEA
     Dosage: 3-5 MG QD ORAL
     Route: 048
  2. MS CONTIN [Suspect]
     Indication: CANCER PAIN
     Dosage: 20-30 MG
  3. VOLTAREN [Suspect]
     Indication: CANCER PAIN
     Dosage: 75 MG
  4. LOPEMIN [Suspect]
     Indication: DIARRHOEA
     Dosage: 2 MG

REACTIONS (7)
  - CONSTIPATION [None]
  - DIARRHOEA [None]
  - DUODENAL ULCER PERFORATION [None]
  - INTESTINAL HYPOMOTILITY [None]
  - LEUKOPENIA [None]
  - MALAISE [None]
  - PERITONITIS [None]
